FAERS Safety Report 5977373-1 (Version None)
Quarter: 2008Q4

REPORT INFORMATION
  Report Type: 
  Country: None (occurrence: None)
  Receive Date: 20081203
  Receipt Date: 20081125
  Transmission Date: 20090506
  Serious: Yes (Other)
  Sender: FDA-Public Use
  Company Number: PHHY2008GB30140

PATIENT

DRUGS (1)
  1. LAMISIL [Suspect]
     Indication: BODY TINEA

REACTIONS (6)
  - ANAEMIA [None]
  - NEUTROPHIL COUNT DECREASED [None]
  - PANCYTOPENIA [None]
  - PLATELET COUNT ABNORMAL [None]
  - RASH [None]
  - WHITE BLOOD CELL COUNT DECREASED [None]
